FAERS Safety Report 8029035-7 (Version None)
Quarter: 2012Q1

REPORT INFORMATION
  Report Type: 
  Country: None (occurrence: None)
  Receive Date: 20120106
  Receipt Date: 20120102
  Transmission Date: 20120608
  Serious: Yes (Death, Hospitalization)
  Sender: FDA-Public Use
  Company Number: FR-ELI_LILLY_AND_COMPANY-FR201201000069

PATIENT
  Sex: Male

DRUGS (14)
  1. LASIX [Concomitant]
     Dosage: 40 MG, QD
     Dates: start: 20110201
  2. PRIMPERAN TAB [Concomitant]
     Indication: PREMEDICATION
     Dosage: 10 MG, UNK
  3. BRICANYL [Concomitant]
     Dosage: UNK
     Dates: start: 20110201
  4. RABEPRAZOLE SODIUM [Concomitant]
     Dosage: 10 MG, QD
  5. INSULIN [Concomitant]
     Dosage: UNK
  6. ONDASETRON [Concomitant]
     Indication: PREMEDICATION
     Dosage: 8 MG, UNK
  7. GEMZAR [Suspect]
     Indication: PANCREATIC CARCINOMA METASTATIC
     Dosage: 1900 MG, DURING 30 MINUTES ON DAY 1 AND DAY 8
     Route: 042
     Dates: start: 20110302, end: 20110309
  8. ALDACTONE [Concomitant]
     Dosage: 75 MG, QD
     Dates: start: 20110201
  9. EMEND [Concomitant]
     Indication: PREMEDICATION
     Dosage: 125 MG, UNK
  10. METHYLPREDNISOLONE [Concomitant]
     Indication: PREMEDICATION
     Dosage: 60 MG, UNK
  11. TRANXENE [Concomitant]
     Indication: PREMEDICATION
     Dosage: 30 MG, UNK
  12. ATARAX [Concomitant]
     Dosage: 25 MG, PRN
  13. TRIMEPRAZINE TARTRATE [Concomitant]
     Dosage: 15 DROPS IN THE EVENING
  14. ATROVENT [Concomitant]
     Dosage: UNK
     Dates: start: 20110201

REACTIONS (8)
  - RENAL FAILURE [None]
  - ELECTROCARDIOGRAM T WAVE INVERSION [None]
  - HYPOTENSION [None]
  - NEOPLASM PROGRESSION [None]
  - CARDIAC FAILURE [None]
  - BRAIN NATRIURETIC PEPTIDE INCREASED [None]
  - PANCREATIC CARCINOMA METASTATIC [None]
  - TROPONIN INCREASED [None]
